FAERS Safety Report 4685099-X (Version None)
Quarter: 2005Q2

REPORT INFORMATION
  Report Type: 
  Country: None (occurrence: None)
  Receive Date: 20050531
  Receipt Date: 20050215
  Transmission Date: 20051028
  Serious: No
  Sender: FDA-Public Use
  Company Number: FABR-11025

PATIENT
  Age: 31 Year
  Sex: Male
  Weight: 66.7 kg

DRUGS (4)
  1. FABRAZYME [Suspect]
     Indication: FABRY'S DISEASE
     Dosage: 70 MG Q2WKS IV
     Route: 042
     Dates: start: 20040901
  2. TYLENOL (CAPLET) [Concomitant]
  3. BENADRYL [Concomitant]
  4. TEGRETOL [Concomitant]

REACTIONS (2)
  - CYTOMEGALOVIRUS VIRAEMIA [None]
  - EPSTEIN-BARR VIRUS ANTIBODY POSITIVE [None]
